FAERS Safety Report 7244558-6 (Version None)
Quarter: 2011Q1

REPORT INFORMATION
  Report Type: 
  Country: None (occurrence: None)
  Receive Date: 20110125
  Receipt Date: 20110117
  Transmission Date: 20110831
  Serious: Yes (Hospitalization)
  Sender: FDA-Public Use
  Company Number: US-US-EMD SERONO, INC.-7027071

PATIENT
  Sex: Male
  Weight: 77 kg

DRUGS (3)
  1. LASIX [Concomitant]
  2. REBIF [Suspect]
     Indication: MULTIPLE SCLEROSIS
     Route: 058
     Dates: start: 20100805
  3. MEDICATION FOR DEPRESSION [Concomitant]
     Indication: DEPRESSION

REACTIONS (5)
  - HEADACHE [None]
  - CHRONIC OBSTRUCTIVE PULMONARY DISEASE [None]
  - INFLUENZA LIKE ILLNESS [None]
  - MULTIPLE SCLEROSIS RELAPSE [None]
  - BODY TEMPERATURE INCREASED [None]
